FAERS Safety Report 4922802-5 (Version None)
Quarter: 2006Q1

REPORT INFORMATION
  Report Type: 
  Country: None (occurrence: None)
  Receive Date: 20060221
  Receipt Date: 20060210
  Transmission Date: 20060701
  Serious: Yes (Hospitalization)
  Sender: FDA-Public Use
  Company Number: FRWYE383110FEB06

PATIENT
  Age: 21 Year
  Sex: Female

DRUGS (1)
  1. ETHINYL ESTRADIOL AND LEVONORGESTREL [Suspect]
     Indication: ORAL CONTRACEPTION
     Dosage: 1 TABLET  1X PER 1 DAY ORAL
     Route: 048
     Dates: start: 20011201, end: 20050715

REACTIONS (9)
  - ANOREXIA [None]
  - ASTHENIA [None]
  - FATIGUE [None]
  - LYMPHADENOPATHY [None]
  - MYALGIA [None]
  - PYREXIA [None]
  - TONGUE COATED [None]
  - TONGUE DISCOLOURATION [None]
  - VOMITING [None]
